FAERS Safety Report 20415154 (Version 1)
Quarter: 2022Q1

REPORT INFORMATION
  Report Type: Spontaneous
  Country: FR (occurrence: FR)
  Receive Date: 20220202
  Receipt Date: 20220202
  Transmission Date: 20220423
  Serious: Yes (Other)
  Sender: FDA-Public Use
  Company Number: None

PATIENT
  Age: 70 Year
  Sex: Male
  Weight: 80 kg

DRUGS (4)
  1. LEVOFLOXACIN [Suspect]
     Active Substance: LEVOFLOXACIN
     Indication: Product used for unknown indication
     Dosage: UNIT DOSE 1000MG
     Route: 048
     Dates: start: 20210226, end: 20210312
  2. RIFAMPIN [Suspect]
     Active Substance: RIFAMPIN
     Indication: Arthritis bacterial
     Dosage: UNIT DOSE 600MG
     Route: 048
     Dates: start: 20210226, end: 20210310
  3. IOBITRIDOL [Suspect]
     Active Substance: IOBITRIDOL
     Indication: Computerised tomogram
     Dosage: XENETIX 350 (350 MG IODINE / ML), SOLUTION FOR INJECTION UNIT DOSE 95 ML
     Route: 042
     Dates: start: 20210310, end: 20210310
  4. IOBITRIDOL [Suspect]
     Active Substance: IOBITRIDOL
     Dosage: 110 ML
     Route: 042
     Dates: start: 20210303, end: 20210303

REACTIONS (1)
  - Rash maculo-papular [Recovered/Resolved]

NARRATIVE: CASE EVENT DATE: 20210311
